FAERS Safety Report 5933832-9 (Version None)
Quarter: 2008Q4

REPORT INFORMATION
  Report Type: 
  Country: None (occurrence: None)
  Receive Date: 20081029
  Receipt Date: 20081015
  Transmission Date: 20090506
  Serious: Yes (Hospitalization, Other)
  Sender: FDA-Public Use
  Company Number: PHHY2008BR25033

PATIENT
  Sex: Female
  Weight: 90 kg

DRUGS (6)
  1. DIOVAN [Suspect]
     Indication: HYPERTENSION
     Dosage: 2 DF, Q96H
     Route: 048
     Dates: start: 20080604
  2. FLORATIL [Concomitant]
     Indication: DIARRHOEA
     Dosage: 2 DF, QD
     Route: 048
     Dates: start: 20081015
  3. PROCTYL [Concomitant]
     Indication: ANAL FISSURE
     Dosage: UNK
     Dates: start: 20081015
  4. OMEPRAZOLE [Concomitant]
     Indication: HIATUS HERNIA
     Dosage: 1 DF, QD
     Route: 048
  5. OMEPRAZOLE [Concomitant]
     Indication: GASTRITIS
  6. TRIMEBUTINE MALEATE [Concomitant]
     Dosage: 2 DF, QD
     Route: 048

REACTIONS (13)
  - ABDOMINAL DISCOMFORT [None]
  - ABDOMINAL PAIN [None]
  - ABDOMINAL PAIN UPPER [None]
  - ABNORMAL FAECES [None]
  - ANAL FISSURE [None]
  - BLADDER PAIN [None]
  - BLOOD PRESSURE INCREASED [None]
  - COLONOSCOPY [None]
  - CYSTITIS [None]
  - FEELING ABNORMAL [None]
  - FREQUENT BOWEL MOVEMENTS [None]
  - INSOMNIA [None]
  - NEPHROLITHIASIS [None]
